FAERS Safety Report 24330764 (Version 1)
Quarter: 2024Q3

REPORT INFORMATION
  Report Type: Spontaneous
  Country: BR (occurrence: None)
  Receive Date: 20240918
  Receipt Date: 20240918
  Transmission Date: 20241016
  Serious: Yes (Hospitalization, Other)
  Sender: ASTRAZENECA
  Company Number: 2024A211695

PATIENT
  Sex: Male

DRUGS (3)
  1. METOPROLOL SUCCINATE [Suspect]
     Active Substance: METOPROLOL SUCCINATE
     Indication: Cardiac disorder
     Dosage: A TABLET
     Route: 048
  2. XIGDUO XR [Suspect]
     Active Substance: DAPAGLIFLOZIN PROPANEDIOL\METFORMIN HYDROCHLORIDE
     Indication: Diabetes mellitus
     Dosage: A TABLET AFTER BREAKFAST
     Route: 048
  3. XIGDUO XR [Suspect]
     Active Substance: DAPAGLIFLOZIN PROPANEDIOL\METFORMIN HYDROCHLORIDE
     Indication: Diabetes mellitus
     Dosage: A TABLET IN THE MORNING AND A TABLET AT NIGHT
     Route: 048

REACTIONS (7)
  - Arrhythmia [Unknown]
  - Intentional device misuse [Unknown]
  - Blood cholesterol increased [Unknown]
  - Off label use [Unknown]
  - Dyspnoea [Recovered/Resolved]
  - Abdominal pain upper [Unknown]
  - Mitral valve stenosis [Unknown]
